FAERS Safety Report 9598015 (Version 1)
Quarter: 2013Q4

REPORT INFORMATION
  Report Type: Spontaneous
  Country: US (occurrence: US)
  Receive Date: 20131004
  Receipt Date: 20131004
  Transmission Date: 20140711
  Serious: No
  Sender: FDA-Public Use
  Company Number: US-AMGEN-USASP2013022140

PATIENT
  Age: 35 Year
  Sex: Female
  Weight: 63 kg

DRUGS (3)
  1. ENBREL [Suspect]
     Indication: PRODUCT USED FOR UNKNOWN INDICATION
     Dosage: 50 MG, QWK
     Route: 058
  2. MOTRIN [Concomitant]
     Dosage: 600 MG, UNK
     Route: 048
  3. KENALOG-10 [Concomitant]
     Dosage: 10 MG/ML, UNK
     Route: 058

REACTIONS (2)
  - Headache [Unknown]
  - Impaired healing [Unknown]
